FAERS Safety Report 9539497 (Version 1)
Quarter: 2013Q2

REPORT INFORMATION
  Report Type: Spontaneous
  Country: US (occurrence: None)
  Receive Date: 20130521
  Receipt Date: 20130521
  Transmission Date: 20140414
  Serious: Yes (Other)
  Sender: FDA-Public Use
  Company Number: 1000042402

PATIENT
  Sex: Female

DRUGS (1)
  1. TUDORZA PRESSAIR [Suspect]
     Dosage: 400 MGC, 2 IN 1 D, RESPIRATORY (INHALATION)
     Dates: start: 201212

REACTIONS (3)
  - Medication error [None]
  - Product taste abnormal [None]
  - Viral infection [None]
